FAERS Safety Report 8093405-1 (Version None)
Quarter: 2012Q1

REPORT INFORMATION
  Report Type: 
  Country: None (occurrence: None)
  Receive Date: 20120131
  Receipt Date: 20120123
  Transmission Date: 20120608
  Serious: Yes (Death, Other)
  Sender: FDA-Public Use
  Company Number: ES-SANOFI-AVENTIS-2012SA004827

PATIENT
  Age: 94 Year
  Sex: Female

DRUGS (6)
  1. VALSARTAN [Interacting]
     Indication: BENIGN PROSTATIC HYPERPLASIA
     Route: 048
     Dates: start: 20070825, end: 20090304
  2. OMEPRAZOLE [Concomitant]
     Route: 048
  3. SINTROM [Concomitant]
     Route: 048
     Dates: end: 20090304
  4. DIGOXIN [Concomitant]
     Route: 048
     Dates: end: 20090304
  5. BOI K [Interacting]
     Route: 048
     Dates: start: 20070825, end: 20090316
  6. FUROSEMIDE [Suspect]
     Route: 048
     Dates: start: 20070905, end: 20090316

REACTIONS (3)
  - DRUG INTERACTION [None]
  - HYPERKALAEMIA [None]
  - RENAL FAILURE ACUTE [None]
